FAERS Safety Report 4867166-0 (Version None)
Quarter: 2005Q4

REPORT INFORMATION
  Report Type: 
  Country: None (occurrence: None)
  Receive Date: 20051222
  Receipt Date: 20051214
  Transmission Date: 20060501
  Serious: Yes (Other)
  Sender: FDA-Public Use
  Company Number: 2005169348

PATIENT
  Age: 69 Year
  Sex: Male
  Weight: 120.2032 kg

DRUGS (7)
  1. TIKOSYN [Suspect]
     Indication: ATRIAL FIBRILLATION
     Dosage: 1000 MCG (500 MCG, BID INTERVAL: EVERY DAY)
  2. CARISOPRODOL [Suspect]
     Indication: SHOULDER PAIN
     Dosage: (350 MG)
     Dates: start: 20051209, end: 20051211
  3. PROPOXYPHENE NAPSYLATE (DEXTROPROPOXYPHENE NAPSILATE) [Suspect]
     Indication: SHOULDER PAIN
     Dates: start: 20051209, end: 20051211
  4. TOPROL-XL [Concomitant]
  5. ENALAPRIL MALEATE [Concomitant]
  6. WARFARIN (WARFARIN) [Concomitant]
  7. EXCEDRIN (MIGRAINE) [Concomitant]

REACTIONS (1)
  - HALLUCINATION [None]
